FAERS Safety Report 7898534-0 (Version None)
Quarter: 2011Q4

REPORT INFORMATION
  Report Type: 
  Country: None (occurrence: None)
  Receive Date: 20111107
  Receipt Date: 20111101
  Transmission Date: 20120403
  Serious: Yes (Other)
  Sender: FDA-Public Use
  Company Number: US-PERRIGO-11US008767

PATIENT
  Sex: Male
  Weight: 54.422 kg

DRUGS (1)
  1. APAP COUGH DAYTIME COOL LIQ 698 [Suspect]
     Indication: COUGH
     Dosage: 30 ML, SINGLE
     Route: 048
     Dates: start: 20111012, end: 20111012

REACTIONS (8)
  - PRURITUS [None]
  - HYPERHIDROSIS [None]
  - MOUTH INJURY [None]
  - LACERATION [None]
  - FALL [None]
  - HYPERSENSITIVITY [None]
  - LOSS OF CONSCIOUSNESS [None]
  - TONGUE INJURY [None]
